FAERS Safety Report 5228103-2 (Version None)
Quarter: 2007Q1

REPORT INFORMATION
  Report Type: 
  Country: None (occurrence: None)
  Receive Date: 20070130
  Receipt Date: 20070116
  Transmission Date: 20070707
  Serious: Yes (Death, Life-Threatening, Hospitalization)
  Sender: FDA-Public Use
  Company Number: FABR-11821

PATIENT
  Age: 52 Year
  Sex: Male
  Weight: 54 kg

DRUGS (1)
  1. FABRAZYME [Suspect]
     Indication: FABRY'S DISEASE
     Dosage: 1 MG/KG Q2WKS IV
     Route: 042
     Dates: start: 20010802, end: 20061221

REACTIONS (6)
  - COMA [None]
  - ENCEPHALITIS [None]
  - MENINGISM [None]
  - SEPTIC SHOCK [None]
  - VERTIGO [None]
  - VIITH NERVE PARALYSIS [None]
